FAERS Safety Report 24663695 (Version 1)
Quarter: 2024Q4

REPORT INFORMATION
  Report Type: Report from Study
  Country: ES (occurrence: None)
  Receive Date: 20241126
  Receipt Date: 20241126
  Transmission Date: 20250114
  Serious: Yes (Hospitalization)
  Sender: NODEN PHARMA
  Company Number: ES-002147023-PHHO2013ES009329

PATIENT
  Age: 85 Year
  Sex: Male

DRUGS (113)
  1. ALISKIREN [Suspect]
     Active Substance: ALISKIREN
     Indication: Cardiac failure
     Dosage: UNKNOWN
     Route: 048
     Dates: start: 20101202, end: 20130404
  2. UNSPECIFIED INGREDIENT [Suspect]
     Active Substance: UNSPECIFIED INGREDIENT
     Indication: Cardiac failure
     Dosage: UNKNOWN
     Route: 048
     Dates: start: 20101202, end: 20130404
  3. SINTROM [Suspect]
     Active Substance: ACENOCOUMAROL
     Indication: Atrial fibrillation
     Dosage: (UNKNOWN) VARIABLE DOSE/CHANGEABLE DOSE
     Route: 065
     Dates: end: 20140528
  4. CLOPIDOGREL [Suspect]
     Active Substance: CLOPIDOGREL BISULFATE
     Indication: Atrial fibrillation
     Dosage: 75 MG, QD
     Route: 048
     Dates: start: 20120331, end: 20130711
  5. CLOPIDOGREL [Suspect]
     Active Substance: CLOPIDOGREL BISULFATE
     Dosage: 75 MG, QD
     Route: 048
     Dates: start: 20140409, end: 20140528
  6. CLOPIDOGREL [Suspect]
     Active Substance: CLOPIDOGREL BISULFATE
     Dosage: 75 MG, QD
     Route: 048
     Dates: start: 20120331, end: 20130711
  7. CLOPIDOGREL [Suspect]
     Active Substance: CLOPIDOGREL BISULFATE
     Dosage: 75 MG, QD
     Route: 048
     Dates: start: 20140409, end: 20140528
  8. ENALAPRIL [Suspect]
     Active Substance: ENALAPRIL
     Indication: Cardiac failure
     Dosage: 10 MG, BID
     Route: 048
     Dates: start: 20101202, end: 20130404
  9. ENALAPRIL [Suspect]
     Active Substance: ENALAPRIL
  10. ENALAPRIL [Suspect]
     Active Substance: ENALAPRIL
  11. ENALAPRIL [Suspect]
     Active Substance: ENALAPRIL
  12. ENALAPRIL [Suspect]
     Active Substance: ENALAPRIL
  13. ENALAPRIL [Suspect]
     Active Substance: ENALAPRIL
  14. ENALAPRIL [Suspect]
     Active Substance: ENALAPRIL
  15. ENALAPRIL [Suspect]
     Active Substance: ENALAPRIL
  16. ENALAPRIL [Suspect]
     Active Substance: ENALAPRIL
  17. ENALAPRIL [Suspect]
     Active Substance: ENALAPRIL
  18. FUROSEMIDE [Concomitant]
     Active Substance: FUROSEMIDE
     Indication: Cardiac failure chronic
     Dosage: 40 MG, TID
     Route: 048
     Dates: start: 20110915, end: 20130711
  19. FUROSEMIDE [Concomitant]
     Active Substance: FUROSEMIDE
     Dosage: 40 MG
     Route: 048
     Dates: start: 20130712
  20. FUROSEMIDE [Concomitant]
     Active Substance: FUROSEMIDE
     Dosage: 20 MG
     Route: 048
     Dates: start: 20130722
  21. FUROSEMIDE [Concomitant]
     Active Substance: FUROSEMIDE
     Dosage: 40 MG
     Route: 048
     Dates: start: 20131106, end: 20131220
  22. FUROSEMIDE [Concomitant]
     Active Substance: FUROSEMIDE
     Dosage: UNK
     Route: 048
     Dates: start: 20131221
  23. FUROSEMIDE [Concomitant]
     Active Substance: FUROSEMIDE
     Dosage: 40 MG, TID
     Route: 048
     Dates: start: 20140106, end: 20140515
  24. FUROSEMIDE [Concomitant]
     Active Substance: FUROSEMIDE
     Dosage: UNK
     Route: 048
     Dates: start: 20140516
  25. FUROSEMIDE [Concomitant]
     Active Substance: FUROSEMIDE
     Dosage: 40 MG, TID
     Route: 048
     Dates: start: 20110915, end: 20130711
  26. FUROSEMIDE [Concomitant]
     Active Substance: FUROSEMIDE
     Dosage: 40 MG, QID
     Route: 048
     Dates: start: 20130712
  27. FUROSEMIDE [Concomitant]
     Active Substance: FUROSEMIDE
     Dosage: 20 MG, QID
     Route: 048
     Dates: start: 20130722
  28. FUROSEMIDE [Concomitant]
     Active Substance: FUROSEMIDE
     Dosage: 40 MG, QID
     Route: 048
     Dates: start: 20131106, end: 20131220
  29. FUROSEMIDE [Concomitant]
     Active Substance: FUROSEMIDE
     Dosage: UNK
     Route: 048
     Dates: start: 20131221
  30. FUROSEMIDE [Concomitant]
     Active Substance: FUROSEMIDE
     Dosage: 40 MG, TID
     Route: 048
     Dates: start: 20140106, end: 20140515
  31. FUROSEMIDE [Concomitant]
     Active Substance: FUROSEMIDE
     Dosage: UNK
     Route: 048
     Dates: start: 20140516
  32. FUROSEMIDE [Concomitant]
     Active Substance: FUROSEMIDE
     Dosage: 40 MG, TID
     Route: 048
     Dates: start: 20110915, end: 20130711
  33. FUROSEMIDE [Concomitant]
     Active Substance: FUROSEMIDE
     Dosage: 40 MG, QID
     Route: 048
     Dates: start: 20130712
  34. FUROSEMIDE [Concomitant]
     Active Substance: FUROSEMIDE
     Dosage: 20 MG, QID
     Route: 048
     Dates: start: 20130722
  35. FUROSEMIDE [Concomitant]
     Active Substance: FUROSEMIDE
     Dosage: 40 MG, QID
     Route: 048
     Dates: start: 20131106, end: 20131220
  36. FUROSEMIDE [Concomitant]
     Active Substance: FUROSEMIDE
     Dosage: UNK
     Route: 048
     Dates: start: 20131221
  37. FUROSEMIDE [Concomitant]
     Active Substance: FUROSEMIDE
     Dosage: 40 MG, TID
     Route: 048
     Dates: start: 20140106, end: 20140515
  38. FUROSEMIDE [Concomitant]
     Active Substance: FUROSEMIDE
     Dosage: UNK
     Route: 048
     Dates: start: 20140516
  39. FUROSEMIDE [Concomitant]
     Active Substance: FUROSEMIDE
     Dosage: 40 MG, TID
     Route: 048
     Dates: start: 20110915, end: 20130711
  40. FUROSEMIDE [Concomitant]
     Active Substance: FUROSEMIDE
     Dosage: 40 MG, QID
     Route: 048
     Dates: start: 20130712
  41. FUROSEMIDE [Concomitant]
     Active Substance: FUROSEMIDE
     Dosage: 20 MG, QID
     Route: 048
     Dates: start: 20130722
  42. FUROSEMIDE [Concomitant]
     Active Substance: FUROSEMIDE
     Dosage: 40 MG, QID
     Route: 048
     Dates: start: 20131106, end: 20131220
  43. FUROSEMIDE [Concomitant]
     Active Substance: FUROSEMIDE
     Dosage: UNK
     Route: 048
     Dates: start: 20131221
  44. FUROSEMIDE [Concomitant]
     Active Substance: FUROSEMIDE
     Dosage: 40 MG, TID
     Route: 048
     Dates: start: 20140106, end: 20140515
  45. FUROSEMIDE [Concomitant]
     Active Substance: FUROSEMIDE
     Dosage: UNK
     Route: 048
     Dates: start: 20140516
  46. FUROSEMIDE [Concomitant]
     Active Substance: FUROSEMIDE
     Dosage: 40 MG, TID
     Route: 048
     Dates: start: 20110915, end: 20130711
  47. FUROSEMIDE [Concomitant]
     Active Substance: FUROSEMIDE
     Dosage: 40 MG, QID
     Route: 048
     Dates: start: 20130712
  48. FUROSEMIDE [Concomitant]
     Active Substance: FUROSEMIDE
     Dosage: 20 MG, QID
     Route: 048
     Dates: start: 20130722
  49. FUROSEMIDE [Concomitant]
     Active Substance: FUROSEMIDE
     Dosage: 40 MG, QID
     Route: 048
     Dates: start: 20131106, end: 20131220
  50. FUROSEMIDE [Concomitant]
     Active Substance: FUROSEMIDE
     Dosage: UNK
     Route: 048
     Dates: start: 20131221
  51. FUROSEMIDE [Concomitant]
     Active Substance: FUROSEMIDE
     Dosage: 40 MG, TID
     Route: 048
     Dates: start: 20140106, end: 20140515
  52. FUROSEMIDE [Concomitant]
     Active Substance: FUROSEMIDE
     Dosage: UNK
     Route: 048
     Dates: start: 20140516
  53. FUROSEMIDE [Concomitant]
     Active Substance: FUROSEMIDE
     Dosage: 40 MG, TID
     Route: 048
     Dates: start: 20110915, end: 20130711
  54. FUROSEMIDE [Concomitant]
     Active Substance: FUROSEMIDE
     Dosage: 40 MG, QID
     Route: 048
     Dates: start: 20130712
  55. FUROSEMIDE [Concomitant]
     Active Substance: FUROSEMIDE
     Dosage: 20 MG, QID
     Route: 048
     Dates: start: 20130722
  56. FUROSEMIDE [Concomitant]
     Active Substance: FUROSEMIDE
     Dosage: 40 MG, QID
     Route: 048
     Dates: start: 20131106, end: 20131220
  57. FUROSEMIDE [Concomitant]
     Active Substance: FUROSEMIDE
     Dosage: UNK
     Route: 048
     Dates: start: 20131221
  58. FUROSEMIDE [Concomitant]
     Active Substance: FUROSEMIDE
     Dosage: 40 MG, TID
     Route: 048
     Dates: start: 20140106, end: 20140515
  59. FUROSEMIDE [Concomitant]
     Active Substance: FUROSEMIDE
     Dosage: UNK
     Route: 048
     Dates: start: 20140516
  60. FUROSEMIDE [Concomitant]
     Active Substance: FUROSEMIDE
     Dosage: 40 MG, TID
     Route: 048
     Dates: start: 20110915, end: 20130711
  61. FUROSEMIDE [Concomitant]
     Active Substance: FUROSEMIDE
     Dosage: 40 MG, QID
     Route: 048
     Dates: start: 20130712
  62. FUROSEMIDE [Concomitant]
     Active Substance: FUROSEMIDE
     Dosage: 20 MG, QID
     Route: 048
     Dates: start: 20130722
  63. FUROSEMIDE [Concomitant]
     Active Substance: FUROSEMIDE
     Dosage: 40 MG, QID
     Route: 048
     Dates: start: 20131106, end: 20131220
  64. FUROSEMIDE [Concomitant]
     Active Substance: FUROSEMIDE
     Dosage: UNK
     Route: 048
     Dates: start: 20131221
  65. FUROSEMIDE [Concomitant]
     Active Substance: FUROSEMIDE
     Dosage: 40 MG, TID
     Route: 048
     Dates: start: 20140106, end: 20140515
  66. FUROSEMIDE [Concomitant]
     Active Substance: FUROSEMIDE
     Dosage: UNK
     Route: 048
     Dates: start: 20140516
  67. BISOPROLOL [Concomitant]
     Active Substance: BISOPROLOL
     Indication: Atrial fibrillation
     Dosage: 5 MG, QD
     Route: 048
     Dates: end: 20130711
  68. ATORVASTATIN [Concomitant]
     Active Substance: ATORVASTATIN
     Indication: Dyslipidaemia
     Dosage: 80 MG, QD
     Route: 048
     Dates: end: 20130711
  69. ATORVASTATIN [Concomitant]
     Active Substance: ATORVASTATIN
     Dosage: 80 MG, QD
     Route: 048
     Dates: start: 20130722
  70. ATORVASTATIN [Concomitant]
     Active Substance: ATORVASTATIN
     Dosage: 80 MG, QD
     Route: 048
     Dates: end: 20130711
  71. ATORVASTATIN [Concomitant]
     Active Substance: ATORVASTATIN
     Dosage: 80 MG, QD
     Route: 048
     Dates: start: 20130722
  72. CHLORTHALIDONE [Concomitant]
     Active Substance: CHLORTHALIDONE
     Indication: Cardiac failure chronic
     Dosage: 25 MG, QD
     Route: 048
     Dates: start: 20140409, end: 20140515
  73. UNSPECIFIED INGREDIENT [Concomitant]
     Active Substance: UNSPECIFIED INGREDIENT
     Indication: Prophylaxis
     Dosage: 15 MG, QD
     Route: 062
     Dates: start: 20120317, end: 20130711
  74. UNSPECIFIED INGREDIENT [Concomitant]
     Active Substance: UNSPECIFIED INGREDIENT
     Dosage: 5 MG, QD
     Route: 062
     Dates: start: 20130722, end: 20131022
  75. UNSPECIFIED INGREDIENT [Concomitant]
     Active Substance: UNSPECIFIED INGREDIENT
     Dosage: 5 MG, QD
     Route: 062
     Dates: start: 20131106, end: 20140515
  76. UNSPECIFIED INGREDIENT [Concomitant]
     Active Substance: UNSPECIFIED INGREDIENT
     Dosage: 15 MG, QD
     Route: 062
     Dates: start: 20120317, end: 20130711
  77. UNSPECIFIED INGREDIENT [Concomitant]
     Active Substance: UNSPECIFIED INGREDIENT
     Dosage: 5 MG, QD
     Route: 062
     Dates: start: 20130722, end: 20131022
  78. UNSPECIFIED INGREDIENT [Concomitant]
     Active Substance: UNSPECIFIED INGREDIENT
     Dosage: 5 MG, QD
     Route: 062
     Dates: start: 20131106, end: 20140515
  79. UNSPECIFIED INGREDIENT [Concomitant]
     Active Substance: UNSPECIFIED INGREDIENT
     Dosage: 15 MG, QD
     Route: 062
     Dates: start: 20120317, end: 20130711
  80. UNSPECIFIED INGREDIENT [Concomitant]
     Active Substance: UNSPECIFIED INGREDIENT
     Dosage: 5 MG, QD
     Route: 062
     Dates: start: 20130722, end: 20131022
  81. UNSPECIFIED INGREDIENT [Concomitant]
     Active Substance: UNSPECIFIED INGREDIENT
     Dosage: 5 MG, QD
     Route: 062
     Dates: start: 20131106, end: 20140515
  82. INSULIN NOS [Concomitant]
     Active Substance: INSULIN NOS
     Indication: Type 2 diabetes mellitus
     Dosage: VARIABLE DOSE (UNKNOWN)
  83. OXYGEN [Concomitant]
     Active Substance: OXYGEN
     Indication: Cardiac failure chronic
     Dosage: (UNKNOWN) VARIABLE DOSE
     Dates: start: 20130712
  84. ENALAPRIL [Concomitant]
     Active Substance: ENALAPRIL
     Indication: Atrial fibrillation
     Dosage: 10 MG, BID
     Route: 048
     Dates: start: 20130405, end: 20130711
  85. EPLERENONE [Concomitant]
     Active Substance: EPLERENONE
     Indication: Oedema peripheral
     Dosage: 25 MG, QD
     Route: 048
     Dates: start: 20131226, end: 20140515
  86. EPLERENONE [Concomitant]
     Active Substance: EPLERENONE
     Indication: Cardiac failure chronic
     Dosage: 25 MG, QD
     Route: 048
     Dates: start: 20130628, end: 20130711
  87. EPLERENONE [Concomitant]
     Active Substance: EPLERENONE
     Dosage: 25 MG, QD
     Route: 048
     Dates: start: 20130723, end: 20131220
  88. EPLERENONE [Concomitant]
     Active Substance: EPLERENONE
     Dosage: 25 MG, QD
     Route: 048
     Dates: start: 20131226, end: 20140515
  89. EPLERENONE [Concomitant]
     Active Substance: EPLERENONE
     Dosage: 25 MG, QD
     Route: 048
     Dates: start: 20130628, end: 20130711
  90. EPLERENONE [Concomitant]
     Active Substance: EPLERENONE
     Dosage: 25 MG, QD
     Route: 048
     Dates: start: 20130723, end: 20131220
  91. EPLERENONE [Concomitant]
     Active Substance: EPLERENONE
     Dosage: 25 MG, QD
     Route: 048
     Dates: start: 20131226, end: 20140515
  92. EPLERENONE [Concomitant]
     Active Substance: EPLERENONE
     Dosage: 25 MG, QD
     Route: 048
     Dates: start: 20130628, end: 20130711
  93. EPLERENONE [Concomitant]
     Active Substance: EPLERENONE
     Dosage: 25 MG, QD
     Route: 048
     Dates: start: 20130723, end: 20131220
  94. CARVEDILOL [Concomitant]
     Active Substance: CARVEDILOL
     Indication: Atrial fibrillation
     Dosage: 6.125 MG, BID
     Route: 048
     Dates: start: 20130713
  95. CARVEDILOL [Concomitant]
     Active Substance: CARVEDILOL
     Dosage: 6.125 MG, BID
     Route: 048
     Dates: start: 20131206, end: 20131220
  96. CARVEDILOL [Concomitant]
     Active Substance: CARVEDILOL
     Dosage: 3.125 MG, BID
     Route: 048
     Dates: start: 20131221
  97. CARVEDILOL [Concomitant]
     Active Substance: CARVEDILOL
     Dosage: 6.125 MG, BID
     Route: 048
     Dates: start: 20130713
  98. CARVEDILOL [Concomitant]
     Active Substance: CARVEDILOL
     Dosage: 6.125 MG, BID
     Route: 048
     Dates: start: 20131206, end: 20131220
  99. CARVEDILOL [Concomitant]
     Active Substance: CARVEDILOL
     Dosage: 3.125 MG, BID
     Route: 048
     Dates: start: 20131221
  100. CARVEDILOL [Concomitant]
     Active Substance: CARVEDILOL
     Dosage: 6.125 MG, BID
     Route: 048
     Dates: start: 20130713
  101. CARVEDILOL [Concomitant]
     Active Substance: CARVEDILOL
     Dosage: 6.125 MG, BID
     Route: 048
     Dates: start: 20131206, end: 20131220
  102. CARVEDILOL [Concomitant]
     Active Substance: CARVEDILOL
     Dosage: 3.125 MG, BID
     Route: 048
     Dates: start: 20131221
  103. DUPHALAC [Concomitant]
     Active Substance: LACTULOSE
     Indication: Constipation
     Dosage: (UNKNOWN) ON DEMAND
     Dates: start: 20101202
  104. FLUIMUCIL [Concomitant]
     Active Substance: ACETYLCYSTEINE
     Indication: Prophylaxis
     Dosage: 600 MG, QD
     Route: 048
     Dates: start: 20130723, end: 20131220
  105. RAMIPRIL [Concomitant]
     Active Substance: RAMIPRIL
     Indication: Cardiac failure chronic
     Dosage: 2.5 G, QD
     Route: 048
     Dates: start: 20130722, end: 20131022
  106. RAMIPRIL [Concomitant]
     Active Substance: RAMIPRIL
     Dosage: 2.5 G, QD
     Route: 048
     Dates: start: 20131023
  107. RAMIPRIL [Concomitant]
     Active Substance: RAMIPRIL
     Dosage: 2.5 G, QD
     Route: 048
     Dates: start: 20131205
  108. RAMIPRIL [Concomitant]
     Active Substance: RAMIPRIL
     Dosage: 2.5 G, QD
     Route: 048
     Dates: start: 20130722, end: 20131022
  109. RAMIPRIL [Concomitant]
     Active Substance: RAMIPRIL
     Dosage: 2.5 G, QD
     Route: 048
     Dates: start: 20131023
  110. RAMIPRIL [Concomitant]
     Active Substance: RAMIPRIL
     Dosage: 2.5 G, QD
     Route: 048
     Dates: start: 20131205
  111. RAMIPRIL [Concomitant]
     Active Substance: RAMIPRIL
     Dosage: 2.5 G, QD
     Route: 048
     Dates: start: 20130722, end: 20131022
  112. RAMIPRIL [Concomitant]
     Active Substance: RAMIPRIL
     Dosage: 2.5 G, QD
     Route: 048
     Dates: start: 20131023
  113. RAMIPRIL [Concomitant]
     Active Substance: RAMIPRIL
     Dosage: 2.5 G, QD
     Route: 048
     Dates: start: 20131205

REACTIONS (7)
  - Lower respiratory tract infection [Recovered/Resolved]
  - Respiratory failure [Recovered/Resolved]
  - Haematuria [Recovered/Resolved]
  - Cardiac failure chronic [Recovered/Resolved]
  - Bronchitis [Recovered/Resolved]
  - Epistaxis [Recovered/Resolved]
  - Product use in unapproved indication [Unknown]

NARRATIVE: CASE EVENT DATE: 20130618
